FAERS Safety Report 4680069-X (Version None)
Quarter: 2005Q2

REPORT INFORMATION
  Report Type: 
  Country: None (occurrence: None)
  Receive Date: 20050531
  Receipt Date: 20050518
  Transmission Date: 20051028
  Serious: Yes (Other)
  Sender: FDA-Public Use
  Company Number: 2005078125

PATIENT
  Age: 58 Year
  Sex: Female
  Weight: 83 kg

DRUGS (1)
  1. DOXORUBICIN HYDROCHLORIDE [Suspect]
     Indication: OVARIAN CANCER
     Dosage: (80 MG) , INTRAVENOUS
     Route: 042
     Dates: start: 20050125, end: 20050419

REACTIONS (3)
  - COUGH [None]
  - DYSPNOEA [None]
  - LUNG DISORDER [None]
